FAERS Safety Report 4701240-4 (Version None)
Quarter: 2005Q2

REPORT INFORMATION
  Report Type: 
  Country: None (occurrence: None)
  Receive Date: 20050624
  Receipt Date: 20050613
  Transmission Date: 20051028
  Serious: Yes (Hospitalization, Other)
  Sender: FDA-Public Use
  Company Number: 2005087276

PATIENT
  Age: 78 Year
  Sex: Female
  Weight: 71.2147 kg

DRUGS (9)
  1. BEXTRA [Suspect]
     Indication: ARTHRITIS
     Dosage: 1 IN 1 D, ORAL
     Route: 048
  2. ACIPHEX [Concomitant]
  3. ALLEGRA [Concomitant]
  4. WARFARIN SODIUM [Concomitant]
  5. TRICOR [Concomitant]
  6. LIPITOR [Concomitant]
  7. DIPHENOXYLATE (DIPHENOXYLATE) [Concomitant]
  8. FUROSEMIDE [Concomitant]
  9. MECLIZINE [Concomitant]

REACTIONS (7)
  - ANAEMIA [None]
  - ARTERIAL DISORDER [None]
  - ERUCTATION [None]
  - HYPERTENSION [None]
  - MUSCLE SPASMS [None]
  - OEDEMA PERIPHERAL [None]
  - THROMBOSIS [None]
